FAERS Safety Report 6882404-0 (Version None)
Quarter: 2010Q3

REPORT INFORMATION
  Report Type: 
  Country: None (occurrence: None)
  Receive Date: 20100729
  Receipt Date: 20100719
  Transmission Date: 20110219
  Serious: Yes (Other)
  Sender: FDA-Public Use
  Company Number: US-PURDUE-USA-2010-0045213

PATIENT
  Sex: Male

DRUGS (1)
  1. COLACE CAPSULES [Suspect]
     Indication: CONSTIPATION
     Dosage: 100 MG, SINGLE
     Dates: start: 20100718, end: 20100718

REACTIONS (1)
  - BLOOD URINE PRESENT [None]
